FAERS Safety Report 13615833 (Version 1)
Quarter: 2017Q2

REPORT INFORMATION
  Report Type: Spontaneous
  Country: US (occurrence: US)
  Receive Date: 20170605
  Receipt Date: 20170605
  Transmission Date: 20170830
  Serious: Yes (Hospitalization)
  Sender: FDA-Public Use
  Company Number: None

PATIENT
  Age: 63 Year
  Sex: Male
  Weight: 60.5 kg

DRUGS (2)
  1. FLUOROURACIL. [Suspect]
     Active Substance: FLUOROURACIL
     Indication: NEOPLASM MALIGNANT
     Dates: end: 20120601
  2. CISPLATIN. [Suspect]
     Active Substance: CISPLATIN
     Dates: end: 20120601

REACTIONS (1)
  - Angioedema [None]

NARRATIVE: CASE EVENT DATE: 20120531
